FAERS Safety Report 11288091 (Version 2)
Quarter: 2015Q3

REPORT INFORMATION
  Report Type: Spontaneous
  Country: US (occurrence: US)
  Receive Date: 20150721
  Receipt Date: 20150910
  Transmission Date: 20151125
  Serious: No
  Sender: FDA-Public Use
  Company Number: CHPA2015US008656

PATIENT
  Age: 90 Year
  Sex: Female

DRUGS (1)
  1. VOLTAREN [Suspect]
     Active Substance: DICLOFENAC SODIUM
     Indication: ARTHRITIS
     Dosage: HEALTHY SQUIRT, TID
     Route: 061
     Dates: end: 20150720

REACTIONS (3)
  - Inappropriate schedule of drug administration [Unknown]
  - Expired product administered [Unknown]
  - Wrong technique in product usage process [Unknown]
